FAERS Safety Report 18447000 (Version 1)
Quarter: 2020Q4

REPORT INFORMATION
  Report Type: Spontaneous
  Country: US (occurrence: US)
  Receive Date: 20201030
  Receipt Date: 20201030
  Transmission Date: 20210114
  Serious: Yes (Hospitalization, Other)
  Sender: FDA-Public Use
  Company Number: US-PURDUE-USA-2020-0172007

PATIENT
  Sex: Male

DRUGS (6)
  1. MS CONTIN [Suspect]
     Active Substance: MORPHINE SULFATE
     Indication: PRODUCT USED FOR UNKNOWN INDICATION
     Dosage: UNKNOWN
     Route: 048
  2. HYDROMORPHONE TABLET (RHODES) [Suspect]
     Active Substance: HYDROMORPHONE
     Dosage: UNKNOWN
     Route: 065
  3. OXYCODONE HCL CR TABLETS (SIMILAR TO NDA 22-272) [Suspect]
     Active Substance: OXYCODONE HYDROCHLORIDE
     Indication: PRODUCT USED FOR UNKNOWN INDICATION
     Dosage: UNKNOWN
     Route: 048
  4. HYDROCODONE BITARTRATE AND ACETAMINOPHEN [Suspect]
     Active Substance: ACETAMINOPHEN\HYDROCODONE BITARTRATE
     Indication: PRODUCT USED FOR UNKNOWN INDICATION
     Dosage: UNKNOWN
     Route: 065
  5. OXYCONTIN [Suspect]
     Active Substance: OXYCODONE HYDROCHLORIDE
     Indication: PRODUCT USED FOR UNKNOWN INDICATION
     Dosage: UNKNOWN
     Route: 048
  6. OXYIR [Suspect]
     Active Substance: OXYCODONE HYDROCHLORIDE
     Indication: PRODUCT USED FOR UNKNOWN INDICATION
     Dosage: UNKNOWN
     Route: 065

REACTIONS (20)
  - Overdose [Unknown]
  - Depression [Unknown]
  - Panic attack [Unknown]
  - Weight decreased [Unknown]
  - Body dysmorphic disorder [Unknown]
  - Drug dependence [Unknown]
  - Anxiety disorder [Unknown]
  - Judgement impaired [Unknown]
  - Laboratory test abnormal [Unknown]
  - Thirst [Unknown]
  - Mental disorder [Unknown]
  - Emotional distress [Unknown]
  - Psychotic disorder [Unknown]
  - Tremor [Unknown]
  - Tuberculosis [Not Recovered/Not Resolved]
  - General physical condition [Unknown]
  - Pain [Unknown]
  - Psychological trauma [Unknown]
  - Cyst [None]
  - Rash [None]

NARRATIVE: CASE EVENT DATE: 2016
